FAERS Safety Report 16767621 (Version 3)
Quarter: 2019Q3

REPORT INFORMATION
  Report Type: Spontaneous
  Country: ES (occurrence: ES)
  Receive Date: 20190903
  Receipt Date: 20190930
  Transmission Date: 20191005
  Serious: Yes (Death)
  Sender: FDA-Public Use
  Company Number: ES-MYLANLABS-2019M1081739

PATIENT
  Age: 84 Year
  Sex: Male

DRUGS (24)
  1. ACETYLSALICYLIC ACID [Concomitant]
     Active Substance: ASPIRIN
     Dosage: 100 MG, 1X/DAY (24H)
     Route: 048
  2. CLOMETHIAZOLE                      /00027502/ [Concomitant]
     Dosage: 192 MG, 1X/DAY (192 MG/24H, IF INSOMNIA)
     Route: 048
  3. METHYLPREDNISOLONE. [Concomitant]
     Active Substance: METHYLPREDNISOLONE
     Dosage: 60 MG, 1X/DAY (60MG/24H)
     Route: 042
  4. CYANOCOBALAMIN. [Concomitant]
     Active Substance: CYANOCOBALAMIN
     Dosage: 1 MG, 1X/DAY (24H)
     Route: 030
  5. LEVODOPA/CARBIDOPA [Concomitant]
     Active Substance: CARBIDOPA\LEVODOPA
     Dosage: UNK MG, 4X/DAY (100/25 MG/6H)
     Route: 048
  6. BUPRENORPHINE. [Concomitant]
     Active Substance: BUPRENORPHINE
     Dosage: UNK UG, UNK (35 MCG/H PATCH/72 H)
     Route: 062
  7. MUPIROCIN. [Concomitant]
     Active Substance: MUPIROCIN
     Indication: INJURY
     Dosage: UNK
  8. METOCLOPRAMIDE                     /00041902/ [Concomitant]
     Active Substance: METOCLOPRAMIDE HYDROCHLORIDE
     Dosage: 10 MG, 3X/DAY (10 MG/8H, IF NAUSEA OR)
     Route: 042
  9. MEROPENEM. [Concomitant]
     Active Substance: MEROPENEM
     Dosage: 1 G, 2X/DAY (1 G/12H)
     Route: 042
  10. VANCOMYCIN [Suspect]
     Active Substance: VANCOMYCIN
     Dosage: 750 MG, 1X/DAY (750MG/24H)
     Route: 042
  11. ERTAPENEM. [Concomitant]
     Active Substance: ERTAPENEM SODIUM
     Indication: URINARY TRACT INFECTION
     Dosage: 1 G, 1X/DAY (1 G/24H
     Route: 042
  12. POVIDONE-IODINE. [Concomitant]
     Active Substance: POVIDONE-IODINE
  13. TIAPRIDE                           /00435702/ [Concomitant]
     Dosage: 50 MG, 1X/DAY (50 MG/24H, IF AGITATION)
  14. OMEPRAZOLE. [Concomitant]
     Active Substance: OMEPRAZOLE
     Dosage: 20 MG, 1X/DAY (20 MG/24H)
     Route: 048
  15. FLUTICASONE W/SALMETEROL [Concomitant]
     Active Substance: FLUTICASONE PROPIONATE\SALMETEROL XINAFOATE
     Dosage: UNK UG, 1X/DAY (50/500 MCG/12H)
     Route: 055
  16. FOLIC ACID. [Concomitant]
     Active Substance: FOLIC ACID
     Dosage: 5 MG, 1X/DAY (24H)
     Route: 048
  17. METAMIZOLE [Concomitant]
     Active Substance: METAMIZOLE
     Dosage: 2 G, 3X/DAY (2 G/8 H)
     Route: 042
  18. IPRATROPIUM BROMIDE. [Concomitant]
     Active Substance: IPRATROPIUM BROMIDE
     Dosage: 5 UG, 1X/DAY (24H)
     Route: 055
  19. PARACETAMOL [Concomitant]
     Active Substance: ACETAMINOPHEN
     Dosage: 1 G, 3X/DAY (1 G/8 H)
     Route: 042
  20. VANCOMYCIN [Suspect]
     Active Substance: VANCOMYCIN
     Indication: STAPHYLOCOCCAL INFECTION
     Dosage: 1 GRAM, BID (1 G, 2X / DAY, EVERY 12 HOURS)
     Route: 042
  21. VALSARTAN. [Concomitant]
     Active Substance: VALSARTAN
     Dosage: UNK
  22. SIMVASTATIN. [Concomitant]
     Active Substance: SIMVASTATIN
     Dosage: UNK
  23. TRAZODONE [Concomitant]
     Active Substance: TRAZODONE HYDROCHLORIDE
     Dosage: 100 MG, 3X/DAY (100 MG/24H, SUPPER)
     Route: 048
  24. LORAZEPAM. [Concomitant]
     Active Substance: LORAZEPAM
     Dosage: 1 MG, 1X/DAY (1 MG/24H, AFTER MIDNIGHT)
     Route: 048

REACTIONS (6)
  - Product use issue [Unknown]
  - Emphysematous cystitis [Fatal]
  - Sepsis [Fatal]
  - Multiple organ dysfunction syndrome [Fatal]
  - Linear IgA disease [Fatal]
  - Off label use [Unknown]
